FAERS Safety Report 7880187-9 (Version None)
Quarter: 2011Q4

REPORT INFORMATION
  Report Type: 
  Country: None (occurrence: None)
  Receive Date: 20111101
  Receipt Date: 20111019
  Transmission Date: 20120403
  Serious: Yes (Other)
  Sender: FDA-Public Use
  Company Number: FR-PFIZER INC-2011251177

PATIENT
  Age: 25 Year
  Sex: Female

DRUGS (5)
  1. FOSPHENYTOIN SODIUM [Suspect]
     Dosage: UNK
     Route: 042
     Dates: start: 20110903, end: 20110904
  2. ZOVIRAX [Suspect]
     Indication: ENCEPHALITIS HERPES
     Dosage: 500 MG, 3X/DAY
     Route: 048
     Dates: start: 20110902
  3. ZOVIRAX [Suspect]
     Dosage: UNK
     Route: 048
     Dates: start: 20110905, end: 20110907
  4. AMOXICILLIN [Concomitant]
     Dosage: UNK
     Route: 042
     Dates: start: 20110903, end: 20110913
  5. KEPPRA [Concomitant]
     Dosage: UNK
     Route: 042
     Dates: start: 20110902

REACTIONS (3)
  - RENAL FAILURE ACUTE [None]
  - ERYTHEMA [None]
  - PRURITUS [None]
